FAERS Safety Report 18602163 (Version 9)
Quarter: 2022Q3

REPORT INFORMATION
  Report Type: Report from Study
  Country: CO (occurrence: CO)
  Receive Date: 20201210
  Receipt Date: 20220721
  Transmission Date: 20221027
  Serious: Yes (Life-Threatening, Other)
  Sender: FDA-Public Use
  Company Number: NVSC2020CO328008

PATIENT
  Sex: Female
  Weight: 78 kg

DRUGS (3)
  1. ELTROMBOPAG OLAMINE [Suspect]
     Active Substance: ELTROMBOPAG OLAMINE
     Indication: Immune thrombocytopenia
     Dosage: 25 MG, QD
     Route: 048
     Dates: start: 20201203
  2. ELTROMBOPAG OLAMINE [Suspect]
     Active Substance: ELTROMBOPAG OLAMINE
     Indication: Aplastic anaemia
     Dosage: 150 MG, QD
     Route: 048
  3. LOSARTAN [Suspect]
     Active Substance: LOSARTAN
     Indication: Hypertension
     Dosage: UNK, Q12H
     Route: 048

REACTIONS (27)
  - Platelet count decreased [Unknown]
  - Diabetes mellitus [Unknown]
  - Malaise [Unknown]
  - Discomfort [Unknown]
  - Renal disorder [Unknown]
  - Feeling abnormal [Unknown]
  - Mouth haemorrhage [Unknown]
  - Epistaxis [Unknown]
  - Illness [Unknown]
  - Dysphonia [Unknown]
  - General physical health deterioration [Unknown]
  - Insomnia [Unknown]
  - Choking sensation [Unknown]
  - Fatigue [Unknown]
  - Pyrexia [Unknown]
  - Pyrexia [Recovered/Resolved]
  - Pain [Unknown]
  - Diarrhoea [Unknown]
  - Cough [Unknown]
  - Influenza [Unknown]
  - Blood glucose increased [Unknown]
  - Headache [Recovered/Resolved]
  - Headache [Unknown]
  - Diarrhoea [Recovered/Resolved]
  - Arthralgia [Unknown]
  - Pain in extremity [Unknown]
  - Inappropriate schedule of product administration [Unknown]
